FAERS Safety Report 22805571 (Version 2)
Quarter: 2024Q1

REPORT INFORMATION
  Report Type: Spontaneous
  Country: FR (occurrence: None)
  Receive Date: 20230809
  Receipt Date: 20240206
  Transmission Date: 20240409
  Serious: Yes (Death, Life-Threatening, Hospitalization, Other)
  Sender: FDA-Public Use
  Company Number: 2023A162339

PATIENT
  Age: 62 Year
  Sex: Male
  Weight: 89 kg

DRUGS (54)
  1. ESOMEPRAZOLE [Suspect]
     Active Substance: ESOMEPRAZOLE
     Indication: Product used for unknown indication
     Dosage: UNKNOWN
     Dates: start: 20220719, end: 20220728
  2. LEUCOVORIN [Suspect]
     Active Substance: LEUCOVORIN\LEUCOVORIN CALCIUM
     Dosage: 400MG
     Route: 041
     Dates: start: 20220824, end: 20220824
  3. LEUCOVORIN [Suspect]
     Active Substance: LEUCOVORIN\LEUCOVORIN CALCIUM
     Dosage: 99MG
     Route: 041
     Dates: start: 20220922, end: 20220922
  4. LEUCOVORIN [Suspect]
     Active Substance: LEUCOVORIN\LEUCOVORIN CALCIUM
     Dosage: 400MG
     Route: 041
     Dates: start: 20220811, end: 20220825
  5. LEUCOVORIN [Suspect]
     Active Substance: LEUCOVORIN\LEUCOVORIN CALCIUM
     Route: 041
     Dates: start: 20220908, end: 20220908
  6. LEUCOVORIN [Suspect]
     Active Substance: LEUCOVORIN\LEUCOVORIN CALCIUM
     Route: 041
     Dates: start: 20220614, end: 20220712
  7. BEVACIZUMAB [Suspect]
     Active Substance: BEVACIZUMAB
     Indication: Colorectal cancer
     Dosage: 475 MILLIGRAM
     Route: 041
     Dates: start: 20220614, end: 20220614
  8. BEVACIZUMAB [Suspect]
     Active Substance: BEVACIZUMAB
     Indication: Colorectal cancer
     Dosage: 450 MILLIGRAM
     Route: 041
     Dates: start: 20220629
  9. BEVACIZUMAB [Suspect]
     Active Substance: BEVACIZUMAB
     Indication: Colorectal cancer
     Dosage: 398 MILLIGRAM
     Route: 041
     Dates: start: 20220922, end: 20220922
  10. BEVACIZUMAB [Suspect]
     Active Substance: BEVACIZUMAB
     Indication: Colorectal cancer
     Dosage: 437 MILLIGRAM
     Route: 041
     Dates: start: 20220825, end: 20220825
  11. BEVACIZUMAB [Suspect]
     Active Substance: BEVACIZUMAB
     Indication: Colorectal cancer
     Dosage: 425 MILLIGRAM
     Route: 041
     Dates: start: 20220908, end: 20220908
  12. BEVACIZUMAB [Suspect]
     Active Substance: BEVACIZUMAB
     Indication: Colorectal cancer
     Dosage: 188 MILLIGRAM
     Route: 041
     Dates: start: 20220728, end: 20220728
  13. BEVACIZUMAB [Suspect]
     Active Substance: BEVACIZUMAB
     Indication: Colorectal cancer
     Dosage: 425 MILLIGRAM
     Route: 041
     Dates: start: 20220811, end: 20220811
  14. BEVACIZUMAB [Suspect]
     Active Substance: BEVACIZUMAB
     Indication: Colorectal cancer
     Dosage: 398 MILLIGRAM
     Route: 041
     Dates: start: 20220922, end: 20220922
  15. ONDANSETRON [Suspect]
     Active Substance: ONDANSETRON
     Indication: Product used for unknown indication
     Dosage: UNKNOWN
     Dates: start: 20220614
  16. ZIMBERELIMAB [Suspect]
     Active Substance: ZIMBERELIMAB
     Indication: Colorectal cancer
     Route: 041
     Dates: start: 20220614, end: 20220614
  17. ZIMBERELIMAB [Suspect]
     Active Substance: ZIMBERELIMAB
     Indication: Colorectal cancer
     Dosage: 480 MILLIGRAM
     Route: 041
     Dates: start: 20220712, end: 20220712
  18. ZIMBERELIMAB [Suspect]
     Active Substance: ZIMBERELIMAB
     Indication: Colorectal cancer
     Dosage: 480 MILLIGRAM
     Route: 041
     Dates: start: 20220811, end: 20220811
  19. ZIMBERELIMAB [Suspect]
     Active Substance: ZIMBERELIMAB
     Indication: Colorectal cancer
     Dosage: 480 MILLIGRAM
     Route: 041
     Dates: start: 20220908, end: 20220908
  20. LEUCOVORIN [Suspect]
     Active Substance: LEUCOVORIN\LEUCOVORIN CALCIUM
     Indication: Colorectal cancer
     Dosage: 400 MILLIGRAM
     Route: 041
     Dates: start: 20220825, end: 20220825
  21. LEUCOVORIN [Suspect]
     Active Substance: LEUCOVORIN\LEUCOVORIN CALCIUM
     Indication: Colorectal cancer
     Dosage: 99 MILLIGRAM
     Route: 041
     Dates: start: 20220922, end: 20220922
  22. LEUCOVORIN [Suspect]
     Active Substance: LEUCOVORIN\LEUCOVORIN CALCIUM
     Indication: Colorectal cancer
     Dosage: 400 MILLIGRAM
     Route: 041
     Dates: start: 20220811, end: 20220825
  23. LEUCOVORIN [Suspect]
     Active Substance: LEUCOVORIN\LEUCOVORIN CALCIUM
     Indication: Colorectal cancer
     Dosage: 99 MILLIGRAM
     Route: 041
     Dates: start: 20220908, end: 20220908
  24. LEUCOVORIN [Suspect]
     Active Substance: LEUCOVORIN\LEUCOVORIN CALCIUM
     Indication: Colorectal cancer
     Dosage: 400 MILLIGRAM
     Route: 041
     Dates: start: 20220614, end: 20220712
  25. LEUCOVORIN [Suspect]
     Active Substance: LEUCOVORIN\LEUCOVORIN CALCIUM
     Indication: Colorectal cancer
     Dosage: 400 MILLIGRAM
     Route: 041
     Dates: start: 20220728
  26. OXALIPLATIN [Suspect]
     Active Substance: OXALIPLATIN
     Indication: Colorectal cancer
     Dosage: 165 MILLIGRAM
     Route: 041
     Dates: start: 20220629, end: 20220728
  27. OXALIPLATIN [Suspect]
     Active Substance: OXALIPLATIN
     Indication: Colorectal cancer
     Dosage: 165 MILLIGRAM
     Route: 041
     Dates: start: 20220811, end: 20220825
  28. OXALIPLATIN [Suspect]
     Active Substance: OXALIPLATIN
     Indication: Colorectal cancer
     Dosage: 165 MILLIGRAM
     Route: 041
     Dates: start: 20220614, end: 20220712
  29. OXALIPLATIN [Suspect]
     Active Substance: OXALIPLATIN
     Indication: Colorectal cancer
     Dosage: 82.5 MILLIGRAM
     Route: 041
     Dates: start: 20220908, end: 20220908
  30. OXALIPLATIN [Suspect]
     Active Substance: OXALIPLATIN
     Indication: Colorectal cancer
     Dosage: 165 MILLIGRAM
     Route: 041
     Dates: start: 20220825, end: 20220825
  31. FLUOROURACIL [Suspect]
     Active Substance: FLUOROURACIL
     Indication: Colorectal cancer
     Dosage: 3950 MILLIGRAM
     Route: 041
     Dates: start: 20220908, end: 20220908
  32. FLUOROURACIL [Suspect]
     Active Substance: FLUOROURACIL
     Indication: Colorectal cancer
     Dosage: 4775 MILLIGRAM
     Route: 041
     Dates: start: 20220825, end: 20220825
  33. FLUOROURACIL [Suspect]
     Active Substance: FLUOROURACIL
     Indication: Colorectal cancer
     Dosage: 4800 MILLIGRAM
     Route: 041
     Dates: start: 20220614, end: 20220614
  34. FLUOROURACIL [Suspect]
     Active Substance: FLUOROURACIL
     Indication: Colorectal cancer
     Dosage: 4800 MILLIGRAM
     Route: 041
     Dates: start: 20220629, end: 20220728
  35. FLUOROURACIL [Suspect]
     Active Substance: FLUOROURACIL
     Indication: Colorectal cancer
     Dosage: 800 MILLIGRAM
     Route: 041
     Dates: start: 20220614, end: 20220908
  36. MONTMORILLONITE [Concomitant]
     Active Substance: MONTMORILLONITE
     Indication: Prophylaxis
     Dosage: UNKNOWN
     Dates: start: 20220613
  37. APREPITANT [Concomitant]
     Active Substance: APREPITANT
     Indication: Premedication
     Dosage: UNKNOWN
     Dates: start: 20220613
  38. TRAMADOL [Concomitant]
     Active Substance: TRAMADOL\TRAMADOL HYDROCHLORIDE
     Indication: Prophylaxis
     Dosage: UNKNOWN
     Dates: start: 20220615
  39. ACETAMINOPHEN [Concomitant]
     Active Substance: ACETAMINOPHEN
     Indication: Product used for unknown indication
     Dosage: UNKNOWN
     Dates: start: 20200701
  40. SODIUM BICARBONATE [Concomitant]
     Active Substance: SODIUM BICARBONATE
     Indication: Product used for unknown indication
     Dosage: UNKNOWN
     Dates: start: 20200701
  41. METOCLOPRAMIDE [Concomitant]
     Active Substance: METOCLOPRAMIDE
     Indication: Prophylaxis
     Dosage: UNKNOWN
     Dates: start: 20220613
  42. RACECADOTRIL [Concomitant]
     Active Substance: RACECADOTRIL
     Indication: Prophylaxis
     Dosage: UNKNOWN
     Dates: start: 20220613
  43. COVID-19 VACCINE [Concomitant]
     Indication: Prophylaxis
     Dosage: UNKNOWN
     Dates: start: 20220630, end: 20220630
  44. POLYETHYLENE GLYCOLS [Concomitant]
     Active Substance: POLYETHYLENE GLYCOLS
     Indication: Product used for unknown indication
     Dosage: UNKNOWN
     Dates: start: 20220301
  45. DOXYLAMINE SUCCINATE\SODIUM BROMIDE [Concomitant]
     Active Substance: DOXYLAMINE SUCCINATE\SODIUM BROMIDE
     Indication: Product used for unknown indication
     Dosage: UNKNOWN
     Dates: start: 20210701
  46. FILGRASTIM [Concomitant]
     Active Substance: FILGRASTIM
     Indication: Product used for unknown indication
     Dosage: UNKNOWN
     Dates: start: 20220713, end: 20220727
  47. LOPERAMIDE [Concomitant]
     Active Substance: LOPERAMIDE
     Indication: Prophylaxis
     Dosage: UNKNOWN
     Dates: start: 20220613
  48. HYDROCORTISONE [Concomitant]
     Active Substance: HYDROCORTISONE
     Indication: Bladder cancer
     Dates: start: 20210719, end: 20211118
  49. ARTISIAL [Concomitant]
     Active Substance: CALCIUM CHLORIDE\MAGNESIUM CHLORIDE\POTASSIUM CHLORIDE\POTASSIUM PHOSPHATE, DIBASIC\POTASSIUM PHOSPH
     Indication: Bladder cancer
     Dates: start: 20210719, end: 20211118
  50. LANSOPRAZOLE [Concomitant]
     Active Substance: LANSOPRAZOLE
     Indication: Bladder cancer
     Dates: start: 20210719, end: 20211118
  51. PEGFILGRASTIM [Concomitant]
     Active Substance: PEGFILGRASTIM
     Indication: Bladder cancer
     Dates: start: 20210719, end: 20211118
  52. EPOETIN ZETA [Concomitant]
     Active Substance: ERYTHROPOIETIN
     Indication: Bladder cancer
     Dates: start: 20210719, end: 20211118
  53. LIDOCAINE [Concomitant]
     Active Substance: LIDOCAINE
     Indication: Bladder cancer
     Dates: start: 20210719, end: 20211118
  54. PREDNISLONE [Concomitant]
     Indication: Bladder cancer
     Dates: start: 20210719, end: 20211118

REACTIONS (2)
  - Hypersensitivity [Fatal]
  - Disease progression [Fatal]

NARRATIVE: CASE EVENT DATE: 20221102
